FAERS Safety Report 4336151-X (Version None)
Quarter: 2004Q1

REPORT INFORMATION
  Report Type: 
  Country: None (occurrence: None)
  Receive Date: 20040329
  Receipt Date: 20040106
  Transmission Date: 20041129
  Serious: No
  Sender: FDA-Public Use
  Company Number: USA040155932

PATIENT
  Age: 5 Year
  Sex: Male
  Weight: 21 kg

DRUGS (1)
  1. STRATTERA [Suspect]
     Indication: ATTENTION DEFICIT/HYPERACTIVITY DISORDER
     Dosage: 40 MG/DAY
     Dates: start: 20031220

REACTIONS (6)
  - DIZZINESS [None]
  - LETHARGY [None]
  - MOOD SWINGS [None]
  - NASOPHARYNGITIS [None]
  - NAUSEA [None]
  - PRESCRIBED OVERDOSE [None]
